FAERS Safety Report 23990936 (Version 1)
Quarter: 2024Q2

REPORT INFORMATION
  Report Type: Spontaneous
  Country: US (occurrence: US)
  Receive Date: 20240619
  Receipt Date: 20240619
  Transmission Date: 20240716
  Serious: Yes (Other)
  Sender: FDA-Public Use
  Company Number: US-ABBVIE-5806553

PATIENT
  Sex: Male
  Weight: 63.502 kg

DRUGS (4)
  1. CREON [Suspect]
     Active Substance: PANCRELIPASE AMYLASE\PANCRELIPASE LIPASE\PANCRELIPASE PROTEASE
     Indication: Pancreatic failure
     Dosage: FORM STRENGTH: 36000 UNIT, FREQUENCY TEXT: 4 CAPSULE PER DAY, START DATE TEXT: 1 YEAR AND 2 MONTHS
     Route: 048
     Dates: start: 202304, end: 20240613
  2. THEOPHYLLINE [Concomitant]
     Active Substance: THEOPHYLLINE
     Indication: Cystic fibrosis
     Route: 065
  3. LINZESS [Concomitant]
     Active Substance: LINACLOTIDE
     Indication: Impaired gastric emptying
     Route: 065
  4. SYMBICORT [Concomitant]
     Active Substance: BUDESONIDE\FORMOTEROL FUMARATE DIHYDRATE
     Indication: Product used for unknown indication
     Route: 065

REACTIONS (13)
  - Gastric haemorrhage [Not Recovered/Not Resolved]
  - Dyschezia [Not Recovered/Not Resolved]
  - Dyspnoea [Not Recovered/Not Resolved]
  - Pain [Not Recovered/Not Resolved]
  - Gastrooesophageal reflux disease [Not Recovered/Not Resolved]
  - Oxygen saturation decreased [Unknown]
  - Abdominal distension [Not Recovered/Not Resolved]
  - Gastrointestinal arteriovenous malformation [Unknown]
  - Large intestinal ulcer [Unknown]
  - Asthenia [Unknown]
  - Nausea [Not Recovered/Not Resolved]
  - Lethargy [Not Recovered/Not Resolved]
  - Cystic fibrosis [Not Recovered/Not Resolved]

NARRATIVE: CASE EVENT DATE: 20240101
